FAERS Safety Report 9988717 (Version 1)
Quarter: 2013Q4

REPORT INFORMATION
  Report Type: Spontaneous
  Country: US (occurrence: None)
  Receive Date: 20131003
  Receipt Date: 20131003
  Transmission Date: 20140711
  Serious: Yes (Hospitalization, Other)
  Sender: FDA-Public Use
  Company Number: ACO_23015_2010

PATIENT
  Age: 52 Year
  Sex: Female
  Weight: 65.8 kg

DRUGS (5)
  1. AMPYRA (DALFAMPRIDINE) TABLET, 10MG [Suspect]
     Indication: GAIT DISTURBANCE
     Route: 048
     Dates: start: 20100430, end: 20100526
  2. KLONOPIN (CLONAZEPAM) (TABLETS) [Concomitant]
  3. DEPAKOTE (VALPROATE SEMISODIUM) [Concomitant]
  4. CYMBALTA (DULOXETINE HYDROCHLORIDE) [Concomitant]
  5. ALL OTHER THERAPEUTIC PRODUCTS [Concomitant]

REACTIONS (5)
  - Myoclonus [None]
  - Clostridium difficile colitis [None]
  - Panic attack [None]
  - Insomnia [None]
  - Drug effect decreased [None]
